FAERS Safety Report 9683680 (Version 3)
Quarter: 2014Q1

REPORT INFORMATION
  Report Type: Spontaneous
  Country: US (occurrence: US)
  Receive Date: 20131112
  Receipt Date: 20140204
  Transmission Date: 20141002
  Serious: Yes (Hospitalization)
  Sender: FDA-Public Use
  Company Number: US-ASTRAZENECA-2013SE80478

PATIENT
  Age: 1112 Month
  Sex: Male
  Weight: 57.6 kg

DRUGS (9)
  1. SYMBICORT [Suspect]
     Indication: CHRONIC OBSTRUCTIVE PULMONARY DISEASE
     Dosage: 160/4.5, 2 PUFFS BID
     Route: 055
     Dates: start: 201308, end: 20131020
  2. FLORANIL [Concomitant]
     Indication: HEADACHE
     Dosage: PRN
  3. MULTIVITAMIN [Concomitant]
  4. SPIRIVA [Concomitant]
     Indication: CHRONIC OBSTRUCTIVE PULMONARY DISEASE
  5. COMBIVENT [Concomitant]
     Indication: EMERGENCY CARE
     Dosage: 20-100MCG
  6. LEVOTHYROXINE [Concomitant]
     Indication: THYROID DISORDER
  7. FLOMAX [Concomitant]
     Indication: PROSTATOMEGALY
     Dosage: 0.4 MG CY24
  8. HYDROXAZINE [Concomitant]
     Indication: PRURITUS
  9. VITAMIN D3 [Concomitant]

REACTIONS (4)
  - Pneumonia [Recovered/Resolved]
  - Loss of consciousness [Unknown]
  - Weight decreased [Unknown]
  - Body height decreased [Unknown]
